FAERS Safety Report 7493768-1 (Version None)
Quarter: 2011Q2

REPORT INFORMATION
  Report Type: 
  Country: None (occurrence: None)
  Receive Date: 20110520
  Receipt Date: 20110131
  Transmission Date: 20111010
  Serious: No
  Sender: FDA-Public Use
  Company Number: US-ASTRAZENECA-2011SE05400

PATIENT
  Age: 82 Year
  Sex: Male

DRUGS (1)
  1. VIMOVO [Suspect]
     Indication: MENISCUS LESION
     Dosage: 500/20 MG
     Route: 048
     Dates: start: 20110129, end: 20110130

REACTIONS (5)
  - LIP SWELLING [None]
  - PRURITUS [None]
  - EYELID MARGIN CRUSTING [None]
  - RASH [None]
  - RASH GENERALISED [None]
